FAERS Safety Report 16688408 (Version 1)
Quarter: 2019Q3

REPORT INFORMATION
  Report Type: Spontaneous
  Country: CN (occurrence: CN)
  Receive Date: 20190809
  Receipt Date: 20190809
  Transmission Date: 20191004
  Serious: Yes (Life-Threatening, Hospitalization)
  Sender: FDA-Public Use
  Company Number: CN-PFIZER INC-2019337332

PATIENT
  Age: 85 Year
  Sex: Female
  Weight: 54 kg

DRUGS (1)
  1. GLUCOTROL XL [Suspect]
     Active Substance: GLIPIZIDE
     Indication: GLUCOSE TOLERANCE IMPAIRED
     Dosage: 1 DF, 1X/DAY
     Route: 048
     Dates: start: 20180319, end: 20190327

REACTIONS (4)
  - Dizziness [Recovering/Resolving]
  - Encephalopathy [Recovering/Resolving]
  - Tremor [Recovering/Resolving]
  - Hypoglycaemia [Recovering/Resolving]

NARRATIVE: CASE EVENT DATE: 20190327
